FAERS Safety Report 12744780 (Version 1)
Quarter: 2016Q3

REPORT INFORMATION
  Report Type: Spontaneous
  Country: CA (occurrence: CA)
  Receive Date: 20160915
  Receipt Date: 20160915
  Transmission Date: 20161109
  Serious: Yes (Other)
  Sender: FDA-Public Use
  Company Number: CA-ROCHE-1829797

PATIENT
  Age: 27 Year
  Sex: Female

DRUGS (3)
  1. VISANNE [Interacting]
     Active Substance: DIENOGEST
     Indication: ENDOMETRIOSIS
     Route: 065
  2. MIDAZOLAM [Interacting]
     Active Substance: MIDAZOLAM\MIDAZOLAM HYDROCHLORIDE
     Indication: INSOMNIA
     Route: 065
  3. CLONAZEPAM. [Suspect]
     Active Substance: CLONAZEPAM
     Indication: INSOMNIA
     Route: 065

REACTIONS (5)
  - Abdominal pain [Not Recovered/Not Resolved]
  - Drug ineffective [Unknown]
  - Drug interaction [Unknown]
  - Genital haemorrhage [Not Recovered/Not Resolved]
  - Hypomenorrhoea [Not Recovered/Not Resolved]
